FAERS Safety Report 17360396 (Version 2)
Quarter: 2024Q1

REPORT INFORMATION
  Report Type: Report from Study
  Country: US (occurrence: US)
  Receive Date: 20200203
  Receipt Date: 20240214
  Transmission Date: 20240409
  Serious: Yes (Other)
  Sender: FDA-Public Use
  Company Number: US-GSKCCFUS-CASE-00563555_AE-32944

PATIENT
  Age: 60 Year
  Sex: Female

DRUGS (2)
  1. MEPOLIZUMAB [Suspect]
     Active Substance: MEPOLIZUMAB
     Indication: Asthma
     Dosage: 100 MG, Q4W
     Route: 058
  2. METOPROLOL [Concomitant]
     Active Substance: METOPROLOL
     Indication: Product used for unknown indication
     Dosage: UNK
     Route: 065

REACTIONS (16)
  - Hip fracture [Unknown]
  - Pain [Recovered/Resolved]
  - Fatigue [Unknown]
  - Ventricular extrasystoles [Unknown]
  - Condition aggravated [Unknown]
  - Muscle spasms [Not Recovered/Not Resolved]
  - Pain in extremity [Unknown]
  - Cardiac ablation [Unknown]
  - Biopsy breast [Unknown]
  - Mastectomy [Unknown]
  - Catheterisation cardiac [Unknown]
  - Arthritis [Unknown]
  - Arthralgia [Recovered/Resolved]
  - Fall [Unknown]
  - Epicondylitis [Unknown]
  - Product dose omission issue [Unknown]

NARRATIVE: CASE EVENT DATE: 20190401
